FAERS Safety Report 7236207 (Version 5)
Quarter: 2014Q1

REPORT INFORMATION
  Report Type: Spontaneous
  Country: US (occurrence: US)
  Receive Date: 20100104
  Receipt Date: 20140123
  Transmission Date: 20141002
  Serious: Yes (Hospitalization, Other)
  Sender: FDA-Public Use
  Company Number: US-BAYER-200943708NA

PATIENT
  Age: 25 Year
  Sex: Female
  Weight: 69.09 kg

DRUGS (10)
  1. YASMIN [Suspect]
     Dates: start: 200309, end: 200706
  2. VICODIN [Concomitant]
     Indication: PRODUCT USED FOR UNKNOWN INDICATION
     Route: 065
  3. AMOXICILLIN W/CLAVULANIC ACID [Concomitant]
     Dosage: DOSE 875-125MG
     Dates: start: 20030222
  4. PROMETHEGAN [Concomitant]
     Dates: start: 20030222
  5. CIPRO [Concomitant]
     Dosage: UNK
     Dates: start: 20070519
  6. ZOFRAN [Concomitant]
     Dosage: UNK
     Dates: start: 20070519
  7. CHANTIX [Concomitant]
     Dosage: UNK
     Dates: start: 20070718
  8. ATIVAN [Concomitant]
     Indication: ANXIETY
     Dosage: UNK
     Dates: start: 20050406
  9. LEXAPRO [Concomitant]
     Indication: ANXIETY
     Dosage: UNK
     Dates: start: 20050118
  10. PHENERGAN [Concomitant]

REACTIONS (12)
  - Cholecystitis chronic [Unknown]
  - Abdominal pain [Unknown]
  - Nausea [Unknown]
  - Vomiting [Unknown]
  - Diarrhoea [Unknown]
  - Gallbladder cholesterolosis [Unknown]
  - Nephropathy [Unknown]
  - Nephrolithiasis [Unknown]
  - Urinary tract infection [None]
  - Back pain [None]
  - Urine odour abnormal [None]
  - Chromaturia [None]
